FAERS Safety Report 6381787-8 (Version None)
Quarter: 2009Q3

REPORT INFORMATION
  Report Type: 
  Country: None (occurrence: None)
  Receive Date: 20090930
  Receipt Date: 20090922
  Transmission Date: 20100115
  Serious: Yes (Other)
  Sender: FDA-Public Use
  Company Number: US-ELI_LILLY_AND_COMPANY-US200909001002

PATIENT
  Sex: Female

DRUGS (5)
  1. HUMALOG [Suspect]
     Dosage: UNK, UNK
     Route: 058
  2. HUMALOG [Suspect]
  3. HUMAN INSULIN (RDNA ORIGIN) [Suspect]
  4. LANTUS [Concomitant]
  5. INSULIN [Concomitant]

REACTIONS (9)
  - ARTHRITIS [None]
  - BLOOD GLUCOSE DECREASED [None]
  - BLOOD GLUCOSE INCREASED [None]
  - FIBROMYALGIA [None]
  - HYPOGLYCAEMIA [None]
  - HYPOGLYCAEMIC SEIZURE [None]
  - IMMUNE SYSTEM DISORDER [None]
  - KETOACIDOSIS [None]
  - SYSTEMIC LUPUS ERYTHEMATOSUS [None]
